FAERS Safety Report 6299747-4 (Version None)
Quarter: 2009Q3

REPORT INFORMATION
  Report Type: 
  Country: None (occurrence: None)
  Receive Date: 20090806
  Receipt Date: 20090731
  Transmission Date: 20100115
  Serious: Yes (Hospitalization, Other)
  Sender: FDA-Public Use
  Company Number: US-MERCK-0904USA00588

PATIENT
  Age: 69 Year
  Sex: Female

DRUGS (3)
  1. FOSAMAX [Suspect]
     Indication: OSTEOPOROSIS
     Route: 048
  2. FOSAMAX [Suspect]
     Route: 048
  3. SYNTHROID [Concomitant]
     Route: 065

REACTIONS (10)
  - ARTHROPATHY [None]
  - BONE DISORDER [None]
  - DENTAL CARIES [None]
  - DYSGEUSIA [None]
  - EAR PAIN [None]
  - IMPAIRED HEALING [None]
  - OSTEONECROSIS [None]
  - TOOTH ABSCESS [None]
  - TOOTH DEPOSIT [None]
  - TOOTH FRACTURE [None]
